FAERS Safety Report 8906856 (Version 1)
Quarter: 2012Q4

REPORT INFORMATION
  Report Type: 
  Country: CA (occurrence: CA)
  Receive Date: 20121114
  Receipt Date: 20121114
  Transmission Date: 20130627
  Serious: Yes (Hospitalization)
  Sender: FDA-Public Use
  Company Number: CA-ELI_LILLY_AND_COMPANY-CA201211002033

PATIENT
  Age: 63 Year
  Sex: Female

DRUGS (13)
  1. FORTEO [Suspect]
     Indication: OSTEOPOROSIS
     Dosage: 20 ug, qd
     Route: 058
     Dates: start: 20110614, end: 20120917
  2. FORTEO [Suspect]
     Dosage: 20 ug, qd
     Route: 058
     Dates: start: 20121105
  3. METAMUCIL [Concomitant]
  4. LACTULOSE [Concomitant]
  5. CALCITONIN [Concomitant]
  6. FENTANYL [Concomitant]
  7. HYDROMORPH CONTIN [Concomitant]
  8. ESTROGEN [Concomitant]
  9. DILAUDID [Concomitant]
  10. VITAMIN D [Concomitant]
  11. CALCIUM [Concomitant]
  12. TRAZODONE [Concomitant]
  13. NORTRIPTYLINE [Concomitant]

REACTIONS (1)
  - Pelvic fracture [Recovered/Resolved]
